FAERS Safety Report 22055958 (Version 1)
Quarter: 2023Q1

REPORT INFORMATION
  Report Type: Spontaneous
  Country: US (occurrence: US)
  Receive Date: 20230302
  Receipt Date: 20230302
  Transmission Date: 20230417
  Serious: No
  Sender: FDA-Public Use
  Company Number: US-ANIPHARMA-2022-US-013369

PATIENT
  Sex: Male

DRUGS (2)
  1. BICALUTAMIDE [Suspect]
     Active Substance: BICALUTAMIDE
     Indication: Product used for unknown indication
     Route: 048
  2. LYNPARZA [Suspect]
     Active Substance: OLAPARIB
     Dosage: 400 MILLIGRAMS,TWO TIMES A DAY
     Route: 048

REACTIONS (3)
  - Confusional state [Not Recovered/Not Resolved]
  - Memory impairment [Not Recovered/Not Resolved]
  - Mental status changes [Not Recovered/Not Resolved]
